FAERS Safety Report 16009393 (Version 1)
Quarter: 2019Q1

REPORT INFORMATION
  Report Type: Spontaneous
  Country: EE (occurrence: EE)
  Receive Date: 20190226
  Receipt Date: 20190226
  Transmission Date: 20190418
  Serious: Yes (Other)
  Sender: FDA-Public Use
  Company Number: EE-BRISTOL-MYERS SQUIBB COMPANY-BMS-2019-019847

PATIENT
  Age: 71 Year
  Sex: Female

DRUGS (3)
  1. ATORVASTATIN [Concomitant]
     Active Substance: ATORVASTATIN
     Indication: PRODUCT USED FOR UNKNOWN INDICATION
     Route: 065
  2. ELIQUIS [Suspect]
     Active Substance: APIXABAN
     Indication: CEREBROVASCULAR ACCIDENT PROPHYLAXIS
     Dosage: 5 MG, BID
     Route: 065
  3. PERINDOPRIL + AMLODIPINA KRKA [Concomitant]
     Active Substance: AMLODIPINE\PERINDOPRIL
     Indication: PRODUCT USED FOR UNKNOWN INDICATION
     Route: 065

REACTIONS (2)
  - Ichthyosis [Unknown]
  - Headache [Unknown]
